FAERS Safety Report 8318075-6 (Version None)
Quarter: 2012Q2

REPORT INFORMATION
  Report Type: 
  Country: None (occurrence: None)
  Receive Date: 20120427
  Receipt Date: 20120416
  Transmission Date: 20120825
  Serious: Yes (Hospitalization)
  Sender: FDA-Public Use
  Company Number: US-RANBAXY-2012US-55697

PATIENT
  Age: 79 Year
  Sex: Female

DRUGS (2)
  1. NITROFURANTOIN [Suspect]
     Indication: URINARY TRACT INFECTION
     Dosage: 100 MG, BID
     Route: 065
  2. NITROFURANTOIN [Suspect]
     Indication: NAUSEA

REACTIONS (2)
  - SYSTEMIC INFLAMMATORY RESPONSE SYNDROME [None]
  - CONDITION AGGRAVATED [None]
